FAERS Safety Report 5611934-4 (Version None)
Quarter: 2008Q1

REPORT INFORMATION
  Report Type: 
  Country: None (occurrence: None)
  Receive Date: 20080130
  Receipt Date: 20080130
  Transmission Date: 20080703
  Serious: Yes (Other)
  Sender: FDA-Public Use
  Company Number: None

PATIENT
  Age: 27 Year
  Sex: Female
  Weight: 58.9676 kg

DRUGS (2)
  1. SERTRALINE [Suspect]
     Indication: ANXIETY
     Dosage: 100 MG DAILY ORAL
     Route: 048
     Dates: start: 20030801
  2. SERTRALINE [Suspect]
     Indication: PANIC REACTION
     Dosage: 100 MG DAILY ORAL
     Route: 048
     Dates: start: 20030801

REACTIONS (1)
  - OBSESSIVE-COMPULSIVE DISORDER [None]
